FAERS Safety Report 4955736-0 (Version None)
Quarter: 2006Q1

REPORT INFORMATION
  Report Type: 
  Country: None (occurrence: None)
  Receive Date: 20060328
  Receipt Date: 20060316
  Transmission Date: 20060701
  Serious: Yes (Other)
  Sender: FDA-Public Use
  Company Number: BR-ROCHE-441005

PATIENT

DRUGS (1)
  1. ROACUTAN [Suspect]
     Indication: ACNE
     Route: 048
     Dates: end: 20050815

REACTIONS (5)
  - GENERALISED ANXIETY DISORDER [None]
  - NECK PAIN [None]
  - PANIC DISORDER [None]
  - TINNITUS [None]
  - VISUAL DISTURBANCE [None]
